FAERS Safety Report 8304466-6 (Version None)
Quarter: 2012Q2

REPORT INFORMATION
  Report Type: 
  Country: None (occurrence: None)
  Receive Date: 20120423
  Receipt Date: 20120419
  Transmission Date: 20120825
  Serious: Yes (Hospitalization)
  Sender: FDA-Public Use
  Company Number: IT-BAYER-2012-037813

PATIENT
  Age: 84 Year
  Sex: Male

DRUGS (4)
  1. NITRODERM [Concomitant]
     Dosage: DAILY DOSE 5 MG
     Route: 062
  2. OMEPRAZOLE [Concomitant]
     Dosage: DAILY DOSE 20 MG
     Route: 048
  3. ASPIRIN [Suspect]
     Indication: PROPHYLAXIS
     Dosage: 100 MG, QD
     Route: 048
     Dates: start: 20090101, end: 20120328
  4. FLUTICASONE PROPIONATE/SALMETEROL [Concomitant]

REACTIONS (3)
  - SEPTIC SHOCK [None]
  - ANAEMIA [None]
  - GASTRITIS HAEMORRHAGIC [None]
